FAERS Safety Report 17202250 (Version 1)
Quarter: 2019Q4

REPORT INFORMATION
  Report Type: Spontaneous
  Country: US (occurrence: US)
  Receive Date: 20191203
  Receipt Date: 20191203
  Transmission Date: 20200122
  Serious: Yes (Life-Threatening, Other)
  Sender: FDA-Public Use
  Company Number: None

PATIENT
  Age: 71 Year
  Sex: Male
  Weight: 108.86 kg

DRUGS (37)
  1. GLUCOSE TEST TRIPS [Concomitant]
  2. CHOLESTYRAMINE ORAL PWDR [Concomitant]
  3. PRAZOSIN. [Concomitant]
     Active Substance: PRAZOSIN
  4. LOPERAMIDE [Concomitant]
     Active Substance: LOPERAMIDE
  5. PRALUENT [Suspect]
     Active Substance: ALIROCUMAB
     Indication: CARDIAC DISORDER
     Dosage: ?          QUANTITY:75 MG/ML - MILLLIGRAMS PER MILLILITRES;OTHER FREQUENCY:EVERY 2 WKS;?
     Route: 058
  6. ALBUTERNOL SULFATE AEROSOL [Concomitant]
  7. MOMETASONE FUROATE. [Concomitant]
     Active Substance: MOMETASONE FUROATE
  8. FUROSEMIDE. [Concomitant]
     Active Substance: FUROSEMIDE
  9. KETOTIFEN FUMARATE .025 [Concomitant]
  10. METFORMIN HCL [Concomitant]
     Active Substance: METFORMIN HYDROCHLORIDE
  11. SODIUM FLUORIDE. [Concomitant]
     Active Substance: SODIUM FLUORIDE
  12. KETOCONAZOLE 2% SHAMPOO [Concomitant]
     Active Substance: KETOCONAZOLE
  13. TIOTROPIUM BROMIDE (SPIRIVA) [Concomitant]
  14. OXYGEN. [Concomitant]
     Active Substance: OXYGEN
  15. NITROGLYCERIN. [Concomitant]
     Active Substance: NITROGLYCERIN
  16. DEXLANSOPRAXZOLE [Concomitant]
  17. AMLODIPINE BESYLAGE [Concomitant]
  18. ALIROCUMAB INJECTION [Concomitant]
  19. POTASSIUM CL TAB [Concomitant]
  20. RUXOLITINIB [Concomitant]
     Active Substance: RUXOLITINIB
  21. BRIMONIDINE TARTRATE. [Concomitant]
     Active Substance: BRIMONIDINE TARTRATE
  22. GROUPS [Concomitant]
  23. CLOPIDOGREL BESYLATE TAB [Concomitant]
  24. HYPROMELLOSE 3 OPH GEL [Concomitant]
  25. CLINDAMYCIN PHOSPHATE. [Concomitant]
     Active Substance: CLINDAMYCIN PHOSPHATE
  26. TRIAMCINO ACTO TOP CREAM [Concomitant]
  27. APIXABAN TAB [Concomitant]
  28. DORZOLAMIDE HCL [Concomitant]
     Active Substance: DORZOLAMIDE HYDROCHLORIDE
  29. ACETAMIN 300MB W/COM [Concomitant]
  30. CARVEDILOL TAB [Concomitant]
     Active Substance: CARVEDILOL
  31. VALSARTAN. [Concomitant]
     Active Substance: VALSARTAN
  32. LANCET, TRUEPLUS [Concomitant]
  33. BENZOYL PEROXIDE 5% WASH [Concomitant]
  34. TERBINAFINE HCL 1% CREAM [Concomitant]
  35. LACTOBACILLUS ACIDOPHILUS [Concomitant]
     Active Substance: LACTOBACILLUS ACIDOPHILUS
  36. DOCUSATE NA/SENNOSIDES [Concomitant]
  37. VITAMIN E [Concomitant]
     Active Substance: .ALPHA.-TOCOPHEROL

REACTIONS (7)
  - Immune system disorder [None]
  - Diarrhoea [None]
  - Influenza [None]
  - Liver disorder [None]
  - Liver injury [None]
  - Abdominal distension [None]
  - Flatulence [None]

NARRATIVE: CASE EVENT DATE: 201906
